FAERS Safety Report 9686658 (Version 1)
Quarter: 2013Q4

REPORT INFORMATION
  Report Type: Spontaneous
  Country: US (occurrence: US)
  Receive Date: 20131113
  Receipt Date: 20131113
  Transmission Date: 20140711
  Serious: No
  Sender: FDA-Public Use
  Company Number: US-BAYER-2013-137543

PATIENT
  Age: 86 Year
  Sex: Female

DRUGS (3)
  1. BAYER GENUINE ASPIRIN ORIGINAL STRENGTH [Suspect]
     Dosage: 1 DF, BID
     Route: 048
  2. ALEVE CAPLET [Suspect]
     Indication: HEADACHE
     Dosage: DF
     Route: 048
     Dates: start: 201212, end: 201212
  3. ALEVE CAPLET [Suspect]
     Indication: ANALGESIC THERAPY

REACTIONS (2)
  - Off label use [None]
  - Drug ineffective [Recovered/Resolved]
